FAERS Safety Report 23103468 (Version 1)
Quarter: 2023Q4

REPORT INFORMATION
  Report Type: Spontaneous
  Country: US (occurrence: US)
  Receive Date: 20231025
  Receipt Date: 20231025
  Transmission Date: 20240109
  Serious: No
  Sender: FDA-Public Use
  Company Number: US-Indoco-000378

PATIENT
  Age: 83 Year
  Sex: Female

DRUGS (4)
  1. DORZOLAMIDE [Suspect]
     Active Substance: DORZOLAMIDE
     Indication: Open angle glaucoma
     Dosage: OPHTHALMIC SOLUTION; 2 TIMES DAILY? STRENGTH: 2%
  2. LATANOPROST [Suspect]
     Active Substance: LATANOPROST
     Indication: Open angle glaucoma
     Dosage: STOPPED IN JULY OR SEPTEMBER
  3. LATANOPROST [Suspect]
     Active Substance: LATANOPROST
     Indication: Open angle glaucoma
  4. LUMIGAN [Suspect]
     Active Substance: BIMATOPROST
     Indication: Open angle glaucoma

REACTIONS (7)
  - Dysgeusia [Unknown]
  - Dry eye [Unknown]
  - Vision blurred [Unknown]
  - Eye pruritus [Unknown]
  - Contraindicated product administered [Unknown]
  - Eye pain [Unknown]
  - Productive cough [Unknown]
